FAERS Safety Report 4546415-2 (Version None)
Quarter: 2004Q4

REPORT INFORMATION
  Report Type: 
  Country: None (occurrence: None)
  Receive Date: 20041223
  Receipt Date: 20040823
  Transmission Date: 20050328
  Serious: No
  Sender: FDA-Public Use
  Company Number: US-JNJFOC-20040808469

PATIENT
  Age: 29 Year
  Sex: Female
  Weight: 90.7194 kg

DRUGS (6)
  1. ORTHO EVRA [Suspect]
     Indication: CONTRACEPTION
     Dosage: 1 DOSE(S), 3 IN 4 WEEK, TRANSDERMAL
     Route: 062
     Dates: start: 20040807
  2. ADVAIR (SERETIDE MITE) [Concomitant]
  3. VITAMINS (VITAMINS) [Concomitant]
  4. CLARINEX [Concomitant]
  5. SINGULAIR [Concomitant]
  6. EFFEXOR [Concomitant]

REACTIONS (2)
  - NAUSEA [None]
  - VOMITING [None]
